FAERS Safety Report 5720058-7 (Version None)
Quarter: 2008Q2

REPORT INFORMATION
  Report Type: 
  Country: None (occurrence: None)
  Receive Date: 20080423
  Receipt Date: 20070310
  Transmission Date: 20081010
  Serious: Yes (Other)
  Sender: FDA-Public Use
  Company Number: 230366

PATIENT
  Age: 86 Year
  Sex: Male

DRUGS (1)
  1. AVASTIN [Suspect]
     Indication: RENAL CELL CARCINOMA
     Dates: start: 20060901

REACTIONS (2)
  - HYPERTENSION [None]
  - PROTEINURIA [None]
